FAERS Safety Report 11336170 (Version 2)
Quarter: 2015Q4

REPORT INFORMATION
  Report Type: Report from Study
  Country: US (occurrence: US)
  Receive Date: 20150804
  Receipt Date: 20151123
  Transmission Date: 20160304
  Serious: Yes (Hospitalization, Other)
  Sender: FDA-Public Use
  Company Number: US-MALLINCKRODT-T201503368

PATIENT
  Age: 49 Year
  Sex: Male
  Weight: 104 kg

DRUGS (18)
  1. LIMBITROL [Concomitant]
     Active Substance: AMITRIPTYLINE\CHLORDIAZEPOXIDE
     Dosage: 5-12.5MG 2 TABS QHS
  2. SALICYLATE [Concomitant]
     Active Substance: SALICYLIC ACID
  3. LASIX [Concomitant]
     Active Substance: FUROSEMIDE
  4. RECLAST [Concomitant]
     Active Substance: ZOLEDRONIC ACID
     Dosage: INJ ONCE YEARLY
  5. LOMOTIL [Concomitant]
     Active Substance: ATROPINE SULFATE\DIPHENOXYLATE HYDROCHLORIDE
     Dosage: 0.025MG-.025MG PRN
  6. VITAMIN B3 [Concomitant]
     Active Substance: NIACIN
     Dosage: ONCE WEEKLY
  7. ANDROGEL [Concomitant]
     Active Substance: TESTOSTERONE
  8. OMEPRAZOLE. [Concomitant]
     Active Substance: OMEPRAZOLE
  9. GABAPENTIN. [Concomitant]
     Active Substance: GABAPENTIN
  10. HYDROCODONE [Concomitant]
     Active Substance: HYDROCODONE
     Indication: PAIN
     Dosage: 5/325 MG PRN
  11. METHOTREXATE [Concomitant]
     Active Substance: METHOTREXATE
     Dosage: UNK
     Dates: end: 20151015
  12. REPOSITORY CORTICOTROPIN INJECTION [Suspect]
     Active Substance: CORTICOTROPIN
     Indication: RHEUMATOID ARTHRITIS
     Dosage: 80 UNITS, 2X A WEEK
     Route: 058
     Dates: start: 20150323, end: 20150715
  13. PREDNISONE. [Concomitant]
     Active Substance: PREDNISONE
     Dosage: UNK
     Route: 065
     Dates: end: 201503
  14. ATENOLOL. [Concomitant]
     Active Substance: ATENOLOL
  15. FOLIC ACID. [Concomitant]
     Active Substance: FOLIC ACID
  16. LISINOPRIL. [Concomitant]
     Active Substance: LISINOPRIL
  17. ZOLOFT [Concomitant]
     Active Substance: SERTRALINE HYDROCHLORIDE
  18. FLOMAX [Concomitant]
     Active Substance: TAMSULOSIN HYDROCHLORIDE

REACTIONS (9)
  - Anaemia [Unknown]
  - Rash [Recovered/Resolved]
  - Oral mucosal blistering [Recovered/Resolved]
  - Aggression [Recovered/Resolved]
  - Adrenocortical insufficiency acute [Recovered/Resolved]
  - Cellulitis [Recovered/Resolved]
  - Blister [Recovered/Resolved]
  - Dyskinesia [Recovered/Resolved]
  - Addison^s disease [Unknown]

NARRATIVE: CASE EVENT DATE: 2015
